FAERS Safety Report 6052751-3 (Version None)
Quarter: 2009Q1

REPORT INFORMATION
  Report Type: 
  Country: None (occurrence: None)
  Receive Date: 20090127
  Receipt Date: 20090116
  Transmission Date: 20090719
  Serious: Yes (Disabling, Other)
  Sender: FDA-Public Use
  Company Number: FR-BRISTOL-MYERS SQUIBB COMPANY-14483432

PATIENT
  Age: 64 Year
  Sex: Male

DRUGS (4)
  1. ERBITUX [Suspect]
     Indication: COLON CANCER METASTATIC
     Route: 042
  2. ELOXATIN [Suspect]
     Indication: COLON CANCER METASTATIC
     Dosage: SOLUTION FOR INJECTION
     Route: 042
  3. FLUOROURACIL [Suspect]
     Indication: COLON CANCER METASTATIC
     Dosage: SOLUTION FOR INJECTION
     Route: 042
  4. FOLINIC ACID [Concomitant]
     Indication: COLON CANCER METASTATIC
     Dosage: SOLUTION FOR INJECTION
     Route: 042

REACTIONS (1)
  - PERIPHERAL SENSORY NEUROPATHY [None]
